FAERS Safety Report 12473291 (Version 1)
Quarter: 2016Q2

REPORT INFORMATION
  Report Type: Spontaneous
  Country: JP (occurrence: JP)
  Receive Date: 20160616
  Receipt Date: 20160616
  Transmission Date: 20160815
  Serious: Yes (Other)
  Sender: FDA-Public Use
  Company Number: JP-JNJFOC-20160610140

PATIENT
  Age: 7 Decade
  Sex: Female

DRUGS (3)
  1. FENTANYL CITRATE. [Suspect]
     Active Substance: FENTANYL CITRATE
     Indication: PROCEDURAL PAIN
     Route: 065
     Dates: start: 201606
  2. TRAMCET [Suspect]
     Active Substance: ACETAMINOPHEN\TRAMADOL
     Indication: PRODUCT USED FOR UNKNOWN INDICATION
     Dosage: 3 PER ONE DAY
     Route: 048
     Dates: end: 201606
  3. DROLEPTAN [Concomitant]
     Active Substance: DROPERIDOL
     Indication: PROCEDURAL PAIN
     Route: 065
     Dates: start: 201606

REACTIONS (4)
  - Chills [Not Recovered/Not Resolved]
  - Cold sweat [Not Recovered/Not Resolved]
  - Surgery [Unknown]
  - Drug withdrawal syndrome [Not Recovered/Not Resolved]

NARRATIVE: CASE EVENT DATE: 20160608
